FAERS Safety Report 19252876 (Version 1)
Quarter: 2021Q2

REPORT INFORMATION
  Report Type: Spontaneous
  Country: US (occurrence: US)
  Receive Date: 20210513
  Receipt Date: 20210513
  Transmission Date: 20210717
  Serious: No
  Sender: FDA-Public Use
  Company Number: US-UCBSA-2020012988

PATIENT
  Sex: Male

DRUGS (12)
  1. REMICADE [Concomitant]
     Active Substance: INFLIXIMAB
  2. SORIATANE [Concomitant]
     Active Substance: ACITRETIN
  3. ENBREL [Concomitant]
     Active Substance: ETANERCEPT
  4. TREMFYA [Concomitant]
     Active Substance: GUSELKUMAB
  5. OTEZLA [Concomitant]
     Active Substance: APREMILAST
  6. HUMIRA [Concomitant]
     Active Substance: ADALIMUMAB
  7. TALTZ [Concomitant]
     Active Substance: IXEKIZUMAB
  8. STELARA [Concomitant]
     Active Substance: USTEKINUMAB
  9. METHOTREXATE. [Concomitant]
     Active Substance: METHOTREXATE
  10. NAPROXEN. [Concomitant]
     Active Substance: NAPROXEN
  11. COSENTYX [Concomitant]
     Active Substance: SECUKINUMAB
  12. CIMZIA [Suspect]
     Active Substance: CERTOLIZUMAB PEGOL
     Indication: PSORIASIS
     Dosage: 200 MILLIGRAM, EV 2 WEEKS(QOW)
     Route: 058

REACTIONS (1)
  - Drug hypersensitivity [Unknown]
